FAERS Safety Report 5787285-4 (Version None)
Quarter: 2008Q2

REPORT INFORMATION
  Report Type: 
  Country: None (occurrence: None)
  Receive Date: 20080618
  Receipt Date: 20080610
  Transmission Date: 20081010
  Serious: Yes (Death)
  Sender: FDA-Public Use
  Company Number: US023806

PATIENT
  Age: 45 Year
  Sex: Female

DRUGS (3)
  1. ACTIQ [Suspect]
     Indication: ABDOMINAL PAIN
     Dosage: 800 UG BID BUCCAL
     Route: 002
     Dates: start: 20061219, end: 20080606
  2. ACTIQ [Suspect]
     Indication: PROCEDURAL PAIN
     Dosage: 800 UG BID BUCCAL
     Route: 002
     Dates: start: 20061219, end: 20080606
  3. MORPHINE SULFATE [Concomitant]

REACTIONS (1)
  - ACCIDENTAL OVERDOSE [None]
